FAERS Safety Report 8386577-2 (Version None)
Quarter: 2012Q2

REPORT INFORMATION
  Report Type: 
  Country: None (occurrence: None)
  Receive Date: 20120525
  Receipt Date: 20110916
  Transmission Date: 20120825
  Serious: No
  Sender: FDA-Public Use
  Company Number: US-GLAXOSMITHKLINE-A0944973A

PATIENT
  Age: 59 Year
  Sex: Female

DRUGS (3)
  1. VERAMYST [Suspect]
     Indication: RHINITIS ALLERGIC
     Route: 045
     Dates: start: 20110916, end: 20110916
  2. SUDAFED 12 HOUR [Concomitant]
  3. MULTIPLE VITAMINS [Concomitant]

REACTIONS (1)
  - HEADACHE [None]
